FAERS Safety Report 13864877 (Version 3)
Quarter: 2017Q3

REPORT INFORMATION
  Report Type: Report from Study
  Country: US (occurrence: US)
  Receive Date: 20170814
  Receipt Date: 20170912
  Transmission Date: 20171127
  Serious: Yes (Other)
  Sender: FDA-Public Use
  Company Number: US-JAZZ-2017-US-009122

PATIENT
  Age: 77 Year
  Sex: Male

DRUGS (25)
  1. XYREM [Suspect]
     Active Substance: SODIUM OXYBATE
     Indication: NARCOLEPSY
     Dosage: 2.25 G, BID
     Route: 048
     Dates: start: 20170523, end: 201705
  2. XYREM [Suspect]
     Active Substance: SODIUM OXYBATE
     Dosage: 3.75 G, BID
     Route: 048
     Dates: start: 20170704
  3. PROVIGIL [Concomitant]
     Active Substance: MODAFINIL
  4. TAGAMET [Concomitant]
     Active Substance: CIMETIDINE
  5. FINASTERIDE. [Concomitant]
     Active Substance: FINASTERIDE
  6. CALCIUM WITH VITAMIN D3            /00944201/ [Concomitant]
  7. XYREM [Suspect]
     Active Substance: SODIUM OXYBATE
     Dosage: UNK
     Dates: start: 20170903
  8. ZYRTEC [Concomitant]
     Active Substance: CETIRIZINE HYDROCHLORIDE
  9. ICAPS                              /07499601/ [Concomitant]
     Active Substance: MINERALS\VITAMINS
  10. IRON [Concomitant]
     Active Substance: IRON
  11. VITAMIN B12 [Concomitant]
     Active Substance: CYANOCOBALAMIN
  12. ACETYL-L-CARNITINE [Concomitant]
  13. LYRICA [Concomitant]
     Active Substance: PREGABALIN
  14. VITAMIN C [Concomitant]
     Active Substance: ASCORBIC ACID
  15. FLOMAX [Concomitant]
     Active Substance: TAMSULOSIN HYDROCHLORIDE
  16. XYREM [Suspect]
     Active Substance: SODIUM OXYBATE
     Dosage: 3 G, BID
     Route: 048
     Dates: start: 201705, end: 2017
  17. XYREM [Suspect]
     Active Substance: SODIUM OXYBATE
     Dosage: ONCE NIGHTLY DOSE
     Route: 048
  18. OXYCODONE [Suspect]
     Active Substance: OXYCODONE
     Indication: PRODUCT USED FOR UNKNOWN INDICATION
  19. HYDROCHLOROTHIAZIDE. [Concomitant]
     Active Substance: HYDROCHLOROTHIAZIDE
  20. POTASSIUM CHLORIDE. [Concomitant]
     Active Substance: POTASSIUM CHLORIDE
  21. FLONASE                            /00908302/ [Concomitant]
     Active Substance: MOMETASONE FUROATE
  22. ALPHA LIPOIC ACID [Concomitant]
     Active Substance: .ALPHA.-LIPOIC ACID
  23. BIOTIN [Concomitant]
     Active Substance: BIOTIN
  24. ASPIRIN                            /00002701/ [Concomitant]
     Active Substance: ASPIRIN
  25. IBUPROFEN. [Concomitant]
     Active Substance: IBUPROFEN

REACTIONS (7)
  - Chronic sinusitis [Not Recovered/Not Resolved]
  - Nasal congestion [Unknown]
  - Hot flush [Recovering/Resolving]
  - Diarrhoea [Recovering/Resolving]
  - Pruritus [Recovering/Resolving]
  - Drug dose omission [Unknown]
  - Burning sensation [Recovering/Resolving]

NARRATIVE: CASE EVENT DATE: 2017
